FAERS Safety Report 25400264 (Version 2)
Quarter: 2025Q2

REPORT INFORMATION
  Report Type: Spontaneous
  Country: US (occurrence: US)
  Receive Date: 20250605
  Receipt Date: 20250612
  Transmission Date: 20250717
  Serious: No
  Sender: ROCHE
  Company Number: US-ROCHE-10000301276

PATIENT
  Sex: Female

DRUGS (1)
  1. OCREVUS [Suspect]
     Active Substance: OCRELIZUMAB
     Indication: Multiple sclerosis
     Dosage: ON 22-MAY-2025, PATIENT RECEIVED LAST DOSE OF OCRELIZUMAB
     Route: 042

REACTIONS (1)
  - Pain [Not Recovered/Not Resolved]
